FAERS Safety Report 6723219-3 (Version None)
Quarter: 2010Q2

REPORT INFORMATION
  Report Type: 
  Country: None (occurrence: None)
  Receive Date: 20100513
  Receipt Date: 20100510
  Transmission Date: 20101027
  Serious: Yes (Hospitalization)
  Sender: FDA-Public Use
  Company Number: ES-JNJFOC-20100407323

PATIENT
  Age: 33 Year
  Sex: Male

DRUGS (3)
  1. REMICADE [Suspect]
     Indication: PSORIATIC ARTHROPATHY
     Route: 042
  2. REMICADE [Suspect]
     Route: 042
  3. LEFLUNOMIDE [Concomitant]
     Indication: PSORIATIC ARTHROPATHY

REACTIONS (5)
  - CARDIAC TAMPONADE [None]
  - LYMPH NODE TUBERCULOSIS [None]
  - PERICARDITIS TUBERCULOUS [None]
  - PULMONARY TUBERCULOSIS [None]
  - TUBERCULOUS PLEURISY [None]
